FAERS Safety Report 11200718 (Version 3)
Quarter: 2016Q1

REPORT INFORMATION
  Report Type: Spontaneous
  Country: US (occurrence: US)
  Receive Date: 20150618
  Receipt Date: 20160307
  Transmission Date: 20160525
  Serious: Yes (Hospitalization, Disabling, Other)
  Sender: FDA-Public Use
  Company Number: US-009507513-1204USA00491

PATIENT
  Sex: Female
  Weight: 63.95 kg

DRUGS (7)
  1. BONIVA [Suspect]
     Active Substance: IBANDRONATE SODIUM
     Indication: OSTEOPENIA
     Dosage: 150 MG, QM
     Route: 048
     Dates: start: 2009, end: 200912
  2. FOSAMAX PLUS D [Suspect]
     Active Substance: ALENDRONATE SODIUM\CHOLECALCIFEROL
     Indication: OSTEOPENIA
     Dosage: 70 MG, QW
     Route: 048
     Dates: start: 200508, end: 2009
  3. BONIVA [Suspect]
     Active Substance: IBANDRONATE SODIUM
     Indication: BONE LOSS
  4. FOSAMAX [Suspect]
     Active Substance: ALENDRONATE SODIUM
     Indication: OSTEOPENIA
     Dosage: 70 MG, QW
     Route: 048
     Dates: start: 200210, end: 200507
  5. ALENDRONATE SODIUM. [Suspect]
     Active Substance: ALENDRONATE SODIUM
     Route: 048
     Dates: start: 200210, end: 200907
  6. RECLAST [Suspect]
     Active Substance: ZOLEDRONIC ACID
     Indication: OSTEOPENIA
     Dosage: UNK
     Dates: start: 2009
  7. ZOMETA [Concomitant]
     Active Substance: ZOLEDRONIC ACID
     Dates: start: 200210, end: 200907

REACTIONS (33)
  - Fracture nonunion [Not Recovered/Not Resolved]
  - Bone disorder [Unknown]
  - Fibula fracture [Recovering/Resolving]
  - Cholecystectomy [Unknown]
  - Internal fixation of fracture [Unknown]
  - Fungal oesophagitis [Unknown]
  - Tibia fracture [Recovering/Resolving]
  - Face oedema [Unknown]
  - Low turnover osteopathy [Not Recovered/Not Resolved]
  - Fracture debridement [Unknown]
  - Complication associated with device [Unknown]
  - Open reduction of fracture [Unknown]
  - Bone erosion [Unknown]
  - Breast cancer [Unknown]
  - Haemorrhagic anaemia [Unknown]
  - Atrial flutter [Unknown]
  - Hyperlipidaemia [Unknown]
  - Hypertension [Unknown]
  - Hysterectomy [Unknown]
  - Synovitis [Unknown]
  - Patella fracture [Unknown]
  - Tachycardia [Unknown]
  - Lumbar spinal stenosis [Unknown]
  - Fracture malunion [Unknown]
  - Fall [Unknown]
  - Ecchymosis [Unknown]
  - Intramedullary rod insertion [Unknown]
  - Osteoporosis [Not Recovered/Not Resolved]
  - Internal fixation of fracture [Unknown]
  - Fracture nonunion [Unknown]
  - Hypoxia [Recovered/Resolved]
  - Femur fracture [Unknown]
  - Muscle strain [Unknown]

NARRATIVE: CASE EVENT DATE: 2003
